FAERS Safety Report 23058826 (Version 2)
Quarter: 2023Q4

REPORT INFORMATION
  Report Type: Spontaneous
  Country: US (occurrence: US)
  Receive Date: 20231012
  Receipt Date: 20231023
  Transmission Date: 20240110
  Serious: No
  Sender: FDA-Public Use
  Company Number: US-PFIZER INC-PV202300167490

PATIENT
  Age: 77 Year
  Sex: Female

DRUGS (10)
  1. IBRANCE [Suspect]
     Active Substance: PALBOCICLIB
     Dosage: 75 MG, 1X/DAY (75 MG ONCE EVERY MORNING)
     Route: 048
     Dates: start: 20221130, end: 20230914
  2. ALENDRONATE [Concomitant]
     Active Substance: ALENDRONATE SODIUM
     Dosage: 70 MG
  3. ATORVASTATIN [Concomitant]
     Active Substance: ATORVASTATIN
     Dosage: 20 MG
  4. BRIMONIDINE [Concomitant]
     Active Substance: BRIMONIDINE TARTRATE
     Dosage: 10 ML (BRIMONIDINE 15% OPHTHALMIC SOLUTION 10 ML)
  5. DILTIAZEM [Concomitant]
     Active Substance: DILTIAZEM
     Dosage: 120 MG, DILTIAZEM ER 120 MG CAPSULE (24 H)
  6. KEPPRA [Concomitant]
     Active Substance: LEVETIRACETAM
     Dosage: 500 MG
  7. LATANOPROST [Concomitant]
     Active Substance: LATANOPROST
     Dosage: 2.5 ML (LATANOPROST 0.05 % OPHTH SOLO 2.5 ML)
  8. METOPROLOL TARTRATE [Concomitant]
     Active Substance: METOPROLOL TARTRATE
     Dosage: 100 MG
  9. TIMOLOL [Concomitant]
     Active Substance: TIMOLOL
     Dosage: 5 ML (TIMOLOL 0.25 % OF OPTHA SOLN 5 ML)
  10. TRADJENTA [Concomitant]
     Active Substance: LINAGLIPTIN
     Dosage: 5 MG

REACTIONS (1)
  - Neoplasm progression [Unknown]
